FAERS Safety Report 8298542-4 (Version None)
Quarter: 2012Q2

REPORT INFORMATION
  Report Type: 
  Country: None (occurrence: None)
  Receive Date: 20120419
  Receipt Date: 20110525
  Transmission Date: 20120825
  Serious: No
  Sender: FDA-Public Use
  Company Number: US-ABBOTT-11P-163-0728677-00

PATIENT
  Sex: Female
  Weight: 43.13 kg

DRUGS (2)
  1. LUPRON DEPOT-PED [Suspect]
     Indication: PRECOCIOUS PUBERTY
     Route: 030
     Dates: start: 20090701
  2. ALBUTEROL [Concomitant]
     Indication: ASTHMA
     Route: 055

REACTIONS (4)
  - PYREXIA [None]
  - H1N1 INFLUENZA [None]
  - VIRAL INFECTION [None]
  - PERTUSSIS [None]
